FAERS Safety Report 16219973 (Version 1)
Quarter: 2019Q2

REPORT INFORMATION
  Report Type: Spontaneous
  Country: US (occurrence: US)
  Receive Date: 20190420
  Receipt Date: 20190420
  Transmission Date: 20190711
  Serious: No
  Sender: FDA-Public Use
  Company Number: US-TEVA-2019-US-1030924

PATIENT
  Sex: Female

DRUGS (2)
  1. METOPROLOL SUCCINATE ER TABLET [Suspect]
     Active Substance: METOPROLOL SUCCINATE
     Route: 065
     Dates: start: 201809
  2. METOPROLOL SUCCINATE ER TABLET [Suspect]
     Active Substance: METOPROLOL SUCCINATE
     Indication: TACHYCARDIA
     Route: 065
     Dates: start: 2009

REACTIONS (5)
  - Ventricular extrasystoles [Unknown]
  - Pyrexia [Recovered/Resolved]
  - Gastrooesophageal reflux disease [Recovered/Resolved]
  - Product use in unapproved indication [Unknown]
  - Abdominal discomfort [Recovered/Resolved]

NARRATIVE: CASE EVENT DATE: 201809
